FAERS Safety Report 9640603 (Version 1)
Quarter: 2013Q4

REPORT INFORMATION
  Report Type: Spontaneous
  Country: US (occurrence: None)
  Receive Date: 20131021
  Receipt Date: 20131021
  Transmission Date: 20140711
  Serious: Yes (Death)
  Sender: FDA-Public Use
  Company Number: 2013P1020029

PATIENT
  Age: 76 Year
  Sex: Male

DRUGS (1)
  1. ACTIMMUNE [Suspect]
     Indication: IMMUNE SYSTEM DISORDER
     Dosage: 100 / 0.5 UG/ML; TIW; SC
     Route: 058
     Dates: start: 20080226, end: 20130912

REACTIONS (1)
  - Death [None]
